FAERS Safety Report 8464728-9 (Version None)
Quarter: 2012Q2

REPORT INFORMATION
  Report Type: 
  Country: None (occurrence: None)
  Receive Date: 20120626
  Receipt Date: 20120620
  Transmission Date: 20120825
  Serious: No
  Sender: FDA-Public Use
  Company Number: US-PFIZER INC-2012149755

PATIENT
  Sex: Female
  Weight: 109 kg

DRUGS (3)
  1. PRISTIQ [Suspect]
     Indication: DEPRESSION
     Dosage: 50 MG, DAILY
     Route: 048
     Dates: start: 20100101
  2. PRISTIQ [Suspect]
     Dosage: 100 MG, DAILY
     Route: 048
  3. SINGULAIR [Concomitant]
     Indication: RHINITIS ALLERGIC
     Dosage: 10 MG, DAILY

REACTIONS (2)
  - OBESITY [None]
  - WEIGHT INCREASED [None]
